FAERS Safety Report 17861805 (Version 1)
Quarter: 2020Q2

REPORT INFORMATION
  Report Type: Spontaneous
  Country: US (occurrence: US)
  Receive Date: 20200604
  Receipt Date: 20200604
  Transmission Date: 20200714
  Serious: No
  Sender: FDA-Public Use
  Company Number: US-JUBILANT CADISTA PHARMACEUTICALS-2019JUB00363

PATIENT
  Age: 22 Year
  Sex: Female
  Weight: 52.15 kg

DRUGS (2)
  1. BIRTH CONTROL (UNSPECIFIED) [Concomitant]
  2. SPIRONOLACTONE. [Suspect]
     Active Substance: SPIRONOLACTONE
     Indication: POLYCYSTIC OVARIES
     Dosage: 1 TO 2 TABLETS, 1X/DAY
     Route: 048
     Dates: start: 20190826, end: 20190923

REACTIONS (2)
  - Off label use [Recovered/Resolved]
  - Urticaria [Not Recovered/Not Resolved]

NARRATIVE: CASE EVENT DATE: 20190826
